FAERS Safety Report 9424090 (Version 1)
Quarter: 2013Q3

REPORT INFORMATION
  Report Type: Spontaneous
  Country: IL (occurrence: IL)
  Receive Date: 20130729
  Receipt Date: 20130729
  Transmission Date: 20140515
  Serious: Yes (Other)
  Sender: FDA-Public Use
  Company Number: PHHY2013IL077445

PATIENT
  Sex: Male

DRUGS (2)
  1. EUCREAS [Suspect]
     Dosage: 1 DF, (1000MG MET, 50MG VILD), BID
     Route: 048
  2. METFORMIN [Suspect]
     Dosage: 1 DF, (850 MG), TID

REACTIONS (2)
  - Intentional drug misuse [Unknown]
  - Overdose [Unknown]
